FAERS Safety Report 11168135 (Version 1)
Quarter: 2015Q2

REPORT INFORMATION
  Report Type: Spontaneous
  Country: US (occurrence: US)
  Receive Date: 20150605
  Receipt Date: 20150605
  Transmission Date: 20150821
  Serious: Yes (Other)
  Sender: FDA-Public Use
  Company Number: US-PFIZER INC-2015185252

PATIENT
  Age: 75 Year
  Sex: Male
  Weight: 69.39 kg

DRUGS (1)
  1. BOSULIF [Suspect]
     Active Substance: BOSUTINIB MONOHYDRATE
     Indication: ACUTE MYELOID LEUKAEMIA
     Dosage: 300 MG (100 MG X3), 1X/DAY
     Route: 048
     Dates: start: 20150414

REACTIONS (2)
  - Product use issue [Unknown]
  - Diarrhoea [Unknown]
